FAERS Safety Report 19581344 (Version 1)
Quarter: 2021Q3

REPORT INFORMATION
  Report Type: Report from Study
  Country: US (occurrence: US)
  Receive Date: 20210719
  Receipt Date: 20210719
  Transmission Date: 20211014
  Serious: Yes (Hospitalization, Other)
  Sender: FDA-Public Use
  Company Number: US-TAKEDA-2021TUS042643

PATIENT
  Age: 53 Year
  Sex: Male

DRUGS (16)
  1. TEDUGLUTIDE [Suspect]
     Active Substance: TEDUGLUTIDE
     Indication: SHORT-BOWEL SYNDROME
     Dosage: 2.5 MILLIGRAM (0.04 MG/KG), 7 DOSES PER WEEK
     Route: 065
     Dates: start: 20131203, end: 20140114
  2. TEDUGLUTIDE [Suspect]
     Active Substance: TEDUGLUTIDE
     Indication: SHORT-BOWEL SYNDROME
     Dosage: 2.5 MILLIGRAM (0.04 MG/KG), 7 DOSES PER WEEK
     Route: 065
     Dates: start: 20131203, end: 20140114
  3. TEDUGLUTIDE [Suspect]
     Active Substance: TEDUGLUTIDE
     Dosage: 2.5 MILLIGRAM (0.04 MG/KG), 7 DOSES PER WEEK
     Route: 065
     Dates: start: 20140121, end: 20141112
  4. TEDUGLUTIDE [Suspect]
     Active Substance: TEDUGLUTIDE
     Dosage: 2.5 MILLIGRAM (0.04 MG/KG), 7 DOSES PER WEEK
     Route: 065
     Dates: start: 20140121, end: 20141112
  5. TEDUGLUTIDE [Suspect]
     Active Substance: TEDUGLUTIDE
     Dosage: 2.5 MILLIGRAM (0.04 MG/KG), 7 DOSES PER WEEK
     Route: 065
     Dates: start: 20140121, end: 20141112
  6. TEDUGLUTIDE [Suspect]
     Active Substance: TEDUGLUTIDE
     Dosage: 1.6 MILLIGRAM (0.03 MG/KG), 7 DOSES PER WEEK
     Route: 065
     Dates: start: 20141113, end: 201501
  7. TEDUGLUTIDE [Suspect]
     Active Substance: TEDUGLUTIDE
     Dosage: 1.6 MILLIGRAM (0.03 MG/KG), 7 DOSES PER WEEK
     Route: 065
     Dates: start: 20141113, end: 201501
  8. TEDUGLUTIDE [Suspect]
     Active Substance: TEDUGLUTIDE
     Dosage: 1.6 MILLIGRAM (0.03 MG/KG), 7 DOSES PER WEEK
     Route: 065
     Dates: start: 20141113, end: 201501
  9. ISAVUCONAZOLE [Concomitant]
     Active Substance: ISAVUCONAZOLE
     Indication: VASCULAR DEVICE INFECTION
     Dosage: 372 MILLIGRAM, QD
     Route: 042
     Dates: start: 20210127, end: 20210223
  10. TEDUGLUTIDE [Suspect]
     Active Substance: TEDUGLUTIDE
     Dosage: 1.6 MILLIGRAM (0.03 MG/KG), 7 DOSES PER WEEK
     Route: 065
     Dates: start: 20141113, end: 201501
  11. MICAFUNGIN. [Concomitant]
     Active Substance: MICAFUNGIN SODIUM
     Indication: VASCULAR DEVICE INFECTION
     Dosage: 150 MILLIGRAM, QD
     Route: 042
     Dates: start: 20210131
  12. VANCOMYCIN [Concomitant]
     Active Substance: VANCOMYCIN
     Indication: VASCULAR DEVICE INFECTION
     Dosage: 1 GRAM, QD
     Route: 042
     Dates: start: 20210124, end: 20210125
  13. TEDUGLUTIDE [Suspect]
     Active Substance: TEDUGLUTIDE
     Dosage: 2.5 MILLIGRAM (0.04 MG/KG), 7 DOSES PER WEEK
     Route: 065
     Dates: start: 20140121, end: 20141112
  14. TEDUGLUTIDE [Suspect]
     Active Substance: TEDUGLUTIDE
     Indication: SHORT-BOWEL SYNDROME
     Dosage: 2.5 MILLIGRAM (0.04 MG/KG), 7 DOSES PER WEEK
     Route: 065
     Dates: start: 20131203, end: 20140114
  15. TEDUGLUTIDE [Suspect]
     Active Substance: TEDUGLUTIDE
     Indication: SHORT-BOWEL SYNDROME
     Dosage: 2.5 MILLIGRAM (0.04 MG/KG), 7 DOSES PER WEEK
     Route: 065
     Dates: start: 20131203, end: 20140114
  16. HEPARIN [Concomitant]
     Active Substance: HEPARIN SODIUM
     Indication: THROMBOSIS PROPHYLAXIS
     Dosage: 5000 UNITS/ML, QD
     Route: 058
     Dates: start: 20210124, end: 20210201

REACTIONS (1)
  - Candida infection [Recovered/Resolved]

NARRATIVE: CASE EVENT DATE: 20200607
